FAERS Safety Report 9888454 (Version 1)
Quarter: 2014Q1

REPORT INFORMATION
  Report Type: Spontaneous
  Country: US (occurrence: None)
  Receive Date: 20140207
  Receipt Date: 20140207
  Transmission Date: 20141002
  Serious: Yes (Death)
  Sender: FDA-Public Use
  Company Number: SYM-2014-15441

PATIENT
  Age: 54 Year
  Sex: Male

DRUGS (8)
  1. SALICYLATE [Suspect]
     Route: 048
  2. LORAZEPAM [Suspect]
     Route: 048
  3. METFORMIN (METFORMIN) [Suspect]
     Route: 048
  4. LOSARTAN (LOSARTAN) [Suspect]
     Route: 048
  5. HYDROXYZINE (HYDROXYZINE) [Suspect]
     Route: 048
  6. POTASSIUM CHLORIDE [Suspect]
     Route: 048
  7. FAMOTIDINE (FAMOTIDINE) [Suspect]
     Route: 048
  8. CLINDAMYCIN (CLINDAMYCIN) [Suspect]

REACTIONS (2)
  - Completed suicide [None]
  - Toxicity to various agents [None]
